FAERS Safety Report 5119173-0 (Version None)
Quarter: 2006Q3

REPORT INFORMATION
  Report Type: 
  Country: None (occurrence: None)
  Receive Date: 20060929
  Receipt Date: 20060929
  Transmission Date: 20061208
  Serious: Yes (Death)
  Sender: FDA-Public Use
  Company Number: None

PATIENT
  Age: 55 Year
  Sex: Male

DRUGS (9)
  1. IMATINIB MESYLATE [Suspect]
     Indication: GLIOBLASTOMA MULTIFORME
     Dosage: 400 MG QD
     Dates: start: 20060125, end: 20060828
  2. PTK [Suspect]
     Indication: GLIOBLASTOMA MULTIFORME
     Dosage: 500 MG  BID
     Dates: start: 20060119, end: 20060828
  3. HYDROXYUREA [Suspect]
     Indication: GLIOBLASTOMA MULTIFORME
     Dosage: 500 MG  QD
     Dates: start: 20060125, end: 20060828
  4. KEPPRA [Concomitant]
  5. AMARYL [Concomitant]
  6. TYLENOL [Concomitant]
  7. IMODIUM [Concomitant]
  8. LOMOTIL [Concomitant]
  9. DECADRON [Concomitant]

REACTIONS (4)
  - DIARRHOEA [None]
  - DISEASE PROGRESSION [None]
  - NAUSEA [None]
  - VOMITING [None]
